FAERS Safety Report 6848877-4 (Version None)
Quarter: 2010Q3

REPORT INFORMATION
  Report Type: 
  Country: None (occurrence: None)
  Receive Date: 20100716
  Receipt Date: 20080108
  Transmission Date: 20110219
  Serious: No
  Sender: FDA-Public Use
  Company Number: US-PFIZER INC-2007075641

PATIENT
  Sex: Female
  Weight: 50.8 kg

DRUGS (5)
  1. CHANTIX [Suspect]
     Indication: SMOKING CESSATION THERAPY
     Dosage: FREQUENCY: 1 D
     Dates: start: 20070705
  2. XANAX [Concomitant]
     Dosage: FREQUENCY: 2 IN 1 D
  3. CYMBALTA [Concomitant]
     Indication: PANIC ATTACK
     Dosage: FREQUENCY: 2 IN 1 D
  4. CALCIUM [Concomitant]
  5. VITAMINS [Concomitant]

REACTIONS (6)
  - ABDOMINAL DISTENSION [None]
  - CONSTIPATION [None]
  - FLATULENCE [None]
  - NAUSEA [None]
  - VOMITING [None]
  - WEIGHT DECREASED [None]
